FAERS Safety Report 25049179 (Version 1)
Quarter: 2025Q1

REPORT INFORMATION
  Report Type: Spontaneous
  Country: CN (occurrence: CN)
  Receive Date: 20250307
  Receipt Date: 20250307
  Transmission Date: 20250408
  Serious: Yes (Life-Threatening, Hospitalization, Other)
  Sender: SANOFI AVENTIS
  Company Number: CN-SA-2025SA067619

PATIENT
  Age: 60 Year
  Sex: Male
  Weight: 53 kg

DRUGS (2)
  1. TOUJEO [Suspect]
     Active Substance: INSULIN GLARGINE
     Indication: Type 1 diabetes mellitus
     Dosage: 20 IU, QD
     Route: 058
     Dates: start: 20230331, end: 20250221
  2. INSULIN ASPART [Suspect]
     Active Substance: INSULIN ASPART
     Indication: Type 1 diabetes mellitus
     Dosage: 2 U-4 U-2 U, TID
     Route: 058
     Dates: start: 20230331, end: 20250221

REACTIONS (7)
  - Hypoglycaemic coma [Recovered/Resolved]
  - Dizziness [Recovered/Resolved]
  - Palpitations [Recovering/Resolving]
  - Hyperhidrosis [Recovered/Resolved]
  - Loss of consciousness [Recovered/Resolved]
  - Soft tissue swelling [Recovered/Resolved]
  - Fall [Recovered/Resolved]

NARRATIVE: CASE EVENT DATE: 20250221
